FAERS Safety Report 21988824 (Version 1)
Quarter: 2023Q1

REPORT INFORMATION
  Report Type: Spontaneous
  Country: US (occurrence: US)
  Receive Date: 20230214
  Receipt Date: 20230214
  Transmission Date: 20230418
  Serious: Yes (Other)
  Sender: FDA-Public Use
  Company Number: US-STRIDES ARCOLAB LIMITED-2022SP012496

PATIENT
  Age: 17 Year
  Sex: Female

DRUGS (10)
  1. ETOPOSIDE [Suspect]
     Active Substance: ETOPOSIDE
     Indication: Acute myeloid leukaemia
     Dosage: UNK
     Route: 065
  2. CYTARABINE [Suspect]
     Active Substance: CYTARABINE
     Indication: Acute myeloid leukaemia
     Dosage: UNK
     Route: 065
  3. CYTARABINE [Suspect]
     Active Substance: CYTARABINE
     Dosage: UNK
     Route: 065
  4. DAUNORUBICIN [Suspect]
     Active Substance: DAUNORUBICIN
     Indication: Acute myeloid leukaemia
     Dosage: UNK
     Route: 065
  5. SORAFENIB [Suspect]
     Active Substance: SORAFENIB
     Indication: Acute myeloid leukaemia
     Dosage: UNK
     Route: 065
  6. GILTERITINIB [Suspect]
     Active Substance: GILTERITINIB
     Indication: Acute myeloid leukaemia
     Dosage: 120 MILLIGRAM, CYCLICAL PER DAY (5 CYCLES)
     Route: 065
  7. GILTERITINIB [Suspect]
     Active Substance: GILTERITINIB
     Dosage: 120 MILLIGRAM PER DAY (MAINTENANCE THERAPY)
     Route: 065
  8. GILTERITINIB [Suspect]
     Active Substance: GILTERITINIB
     Dosage: 80 MILLIGRAM PER DAY
     Route: 065
  9. GILTERITINIB [Suspect]
     Active Substance: GILTERITINIB
     Dosage: 40 MILLIGRAM PER DAY
     Route: 065
  10. GEMTUZUMAB OZOGAMICIN [Suspect]
     Active Substance: GEMTUZUMAB OZOGAMICIN
     Indication: Acute myeloid leukaemia
     Dosage: UNK
     Route: 065

REACTIONS (2)
  - Pneumonia [Unknown]
  - Drug ineffective for unapproved indication [Unknown]
